FAERS Safety Report 4619000-1 (Version None)
Quarter: 2005Q1

REPORT INFORMATION
  Report Type: 
  Country: None (occurrence: None)
  Receive Date: 20050325
  Receipt Date: 20050318
  Transmission Date: 20050727
  Serious: Yes (Disabling)
  Sender: FDA-Public Use
  Company Number: 200512542GDDC

PATIENT
  Age: 74 Year
  Sex: Female

DRUGS (3)
  1. NATRILIX - SLOW RELEASE [Suspect]
     Indication: HYPERTENSION
     Route: 048
     Dates: start: 20040901, end: 20050209
  2. LANSOPRAZOLE [Concomitant]
  3. ATENOLOL [Concomitant]

REACTIONS (7)
  - ABDOMINAL PAIN [None]
  - HYPERHIDROSIS [None]
  - HYPERTENSION [None]
  - MALAISE [None]
  - NAUSEA [None]
  - VOMITING [None]
  - WEIGHT DECREASED [None]
